FAERS Safety Report 11198419 (Version 1)
Quarter: 2015Q2

REPORT INFORMATION
  Report Type: Spontaneous
  Country: DK (occurrence: DK)
  Receive Date: 20150618
  Receipt Date: 20150618
  Transmission Date: 20150821
  Serious: Yes (Death)
  Sender: FDA-Public Use
  Company Number: DK-ACCORD-031464

PATIENT
  Age: 24 Year
  Sex: Female
  Weight: 140 kg

DRUGS (7)
  1. STADAQUEL [Suspect]
     Active Substance: QUETIAPINE FUMARATE
     Indication: SCHIZOPHRENIA
     Dosage: DOSE 100 MG 3 TIMES A DAY AT MOST. STRENGTH : 100 MG
     Route: 048
  2. LYRICA [Suspect]
     Active Substance: PREGABALIN
     Indication: ANXIETY
     Dosage: DOSE: 225 + 150 + 225 MG DAILY, STRENGTH 225 + 150 + 225 MG
     Route: 048
  3. QUETIAPINE TEVA [Suspect]
     Active Substance: QUETIAPINE
     Indication: SCHIZOPHRENIA
     Dosage: A MAXIMUM OF 100 MG 3 TIMES DAILY
     Route: 048
  4. DULOXETINE/DULOXETINE HYDROCHLORIDE [Concomitant]
     Indication: DEPRESSION
     Route: 048
  5. QUETIAPINE ACCORD [Suspect]
     Active Substance: QUETIAPINE
     Indication: SCHIZOPHRENIA
     Dosage: 100 MG NOT MORE THAN 3 TIMES A DAY
     Route: 048
  6. PREGABALIN KRKA [Suspect]
     Active Substance: PREGABALIN
     Indication: ANXIETY
     Dosage: DOSE : 225 + 150 + 225 MG DAILY, STRENGTH : 225 + 150 + 225 MG
     Route: 048
  7. OXAZEPAM. [Concomitant]
     Active Substance: OXAZEPAM

REACTIONS (1)
  - Arrhythmia [Fatal]

NARRATIVE: CASE EVENT DATE: 20150320
